FAERS Safety Report 4982627-1 (Version None)
Quarter: 2006Q2

REPORT INFORMATION
  Report Type: 
  Country: None (occurrence: None)
  Receive Date: 20060419
  Receipt Date: 20060407
  Transmission Date: 20061013
  Serious: Yes (Life-Threatening, Other)
  Sender: FDA-Public Use
  Company Number: 2006024721

PATIENT
  Age: 35 Year
  Sex: Female
  Weight: 46 kg

DRUGS (11)
  1. ZYVOX [Suspect]
     Indication: ENTEROCOCCAL INFECTION
     Dosage: 1200 MG (600 MG, 2 IN 1 D), INTRAVENOUS
     Route: 042
     Dates: start: 20060108
  2. ZYVOX [Suspect]
     Indication: ENTEROCOCCAL INFECTION
     Dosage: 1200 MG (600 MG, 2 IN 1 D), ORAL
     Route: 048
     Dates: end: 20060201
  3. TENOFOVIR (TENOFOVIR) [Concomitant]
  4. EMTRICITABINE (EMTRICITABINE) [Concomitant]
  5. SUSTIVA [Concomitant]
  6. VALTREX [Concomitant]
  7. ETHAMBUTOL (ETHAMBUTOL) [Concomitant]
  8. ATOVAQUONE [Concomitant]
  9. MOXIFLOXACIN HCL [Concomitant]
  10. CLARITHROMYCIN [Concomitant]
  11. REGLAN [Concomitant]

REACTIONS (2)
  - CLOSTRIDIAL INFECTION [None]
  - LACTIC ACIDOSIS [None]
